FAERS Safety Report 4572129-9 (Version None)
Quarter: 2005Q1

REPORT INFORMATION
  Report Type: 
  Country: None (occurrence: None)
  Receive Date: 20050202
  Receipt Date: 20050112
  Transmission Date: 20050727
  Serious: Yes (Other)
  Sender: FDA-Public Use
  Company Number: USA050188208

PATIENT
  Age: 82 Year
  Sex: Female
  Weight: 71 kg

DRUGS (6)
  1. EVISTA [Suspect]
  2. BENICAR [Concomitant]
  3. ATENOL             (ATENOLOL EG) [Concomitant]
  4. LIPITOR [Concomitant]
  5. AGGRENOX [Concomitant]
  6. MULTIVITAMINS NOS       (MULTIVITAMINS NOS) [Concomitant]

REACTIONS (1)
  - ENDOMETRIAL CANCER STAGE II [None]
